FAERS Safety Report 9894471 (Version 10)
Quarter: 2014Q4

REPORT INFORMATION
  Report Type: Spontaneous
  Country: US (occurrence: US)
  Receive Date: 20140213
  Receipt Date: 20141212
  Transmission Date: 20150529
  Serious: Yes (Other)
  Sender: FDA-Public Use
  Company Number: US-PFIZER INC-2014038553

PATIENT
  Age: 58 Year
  Sex: Female
  Weight: 49.89 kg

DRUGS (13)
  1. REVATIO [Suspect]
     Active Substance: SILDENAFIL CITRATE
     Indication: CARDIAC DISORDER
  2. LETAIRIS [Suspect]
     Active Substance: AMBRISENTAN
     Dosage: 5 MG, 1X/DAY
  3. ZANTAC [Concomitant]
     Active Substance: RANITIDINE HYDROCHLORIDE
     Dosage: UNK
  4. LASIX [Concomitant]
     Active Substance: FUROSEMIDE
     Dosage: UNK
  5. XANAX [Concomitant]
     Active Substance: ALPRAZOLAM
     Dosage: UNK
  6. AMBIEN [Concomitant]
     Active Substance: ZOLPIDEM TARTRATE
     Dosage: UNK
  7. LOMOTIL [Concomitant]
     Active Substance: ATROPINE SULFATE\DIPHENOXYLATE HYDROCHLORIDE
     Dosage: UNK
  8. REVATIO [Suspect]
     Active Substance: SILDENAFIL CITRATE
     Indication: PULMONARY ARTERIAL HYPERTENSION
     Dosage: 20 MG, 3X/DAY
     Dates: start: 2009
  9. REVATIO [Suspect]
     Active Substance: SILDENAFIL CITRATE
     Indication: PULMONARY ARTERIAL HYPERTENSION
     Dosage: 2 DF, 3X/DAY
  10. TIMOPTIC [Concomitant]
     Active Substance: TIMOLOL MALEATE
     Indication: GLAUCOMA
     Dosage: UNK
  11. OXYCODONE [Concomitant]
     Active Substance: OXYCODONE
     Dosage: UNK, AS NEEDED
  12. DIPHEN/ATROPINE [Concomitant]
     Dosage: UNK
  13. SERZONE [Concomitant]
     Active Substance: NEFAZODONE HYDROCHLORIDE
     Dosage: UNK

REACTIONS (22)
  - Hypotension [Unknown]
  - Gait disturbance [Not Recovered/Not Resolved]
  - Panic attack [Not Recovered/Not Resolved]
  - Intervertebral disc protrusion [Unknown]
  - Brain natriuretic peptide increased [Unknown]
  - Pain [Not Recovered/Not Resolved]
  - Neoplasm malignant [Recovered/Resolved]
  - Escherichia infection [Recovered/Resolved]
  - Fatigue [Unknown]
  - Tremor [Not Recovered/Not Resolved]
  - Procedural pain [Unknown]
  - Decreased appetite [Unknown]
  - Cancer pain [Recovered/Resolved]
  - Dyspnoea [Recovered/Resolved]
  - Arthralgia [Unknown]
  - Pulmonary mass [Recovered/Resolved]
  - Oedema peripheral [Unknown]
  - Synovial cyst [Not Recovered/Not Resolved]
  - Anger [Recovered/Resolved]
  - Pleurisy [Recovered/Resolved]
  - Chest pain [Recovered/Resolved]
  - Weight decreased [Recovered/Resolved]

NARRATIVE: CASE EVENT DATE: 2014
